FAERS Safety Report 6900623-1 (Version None)
Quarter: 2010Q3

REPORT INFORMATION
  Report Type: 
  Country: None (occurrence: None)
  Receive Date: 20100803
  Receipt Date: 20071001
  Transmission Date: 20110219
  Serious: Yes (Hospitalization, Other)
  Sender: FDA-Public Use
  Company Number: PFIZER INC-2006151173

PATIENT
  Sex: Male
  Weight: 90.7 kg

DRUGS (1)
  1. CELEBREX [Suspect]
     Indication: ADENOMATOUS POLYPOSIS COLI
     Route: 048
     Dates: start: 19980101

REACTIONS (3)
  - ACUTE MYOCARDIAL INFARCTION [None]
  - ANXIETY [None]
  - DEPRESSION [None]
